FAERS Safety Report 10098020 (Version 1)
Quarter: 2014Q2

REPORT INFORMATION
  Report Type: Other
  Country: GB (occurrence: GB)
  Receive Date: 20140423
  Receipt Date: 20140423
  Transmission Date: 20141212
  Serious: Yes (Congenital Anomaly, Other)
  Sender: FDA-Public Use
  Company Number: GB-LUPIN PHARMACEUTICALS INC.-E2B_00001949

PATIENT
  Sex: 0

DRUGS (2)
  1. SERTRALINE [Suspect]
     Indication: PRODUCT USED FOR UNKNOWN INDICATION
     Route: 064
  2. THYROXINE [Concomitant]
     Indication: PRODUCT USED FOR UNKNOWN INDICATION
     Route: 064
     Dates: end: 20140207

REACTIONS (5)
  - Teratogenicity [Not Recovered/Not Resolved]
  - Craniorachischisis [Not Recovered/Not Resolved]
  - Anencephaly [Not Recovered/Not Resolved]
  - Cystic lymphangioma [Not Recovered/Not Resolved]
  - Foetal exposure during pregnancy [Unknown]
